FAERS Safety Report 26025097 (Version 1)
Quarter: 2025Q4

REPORT INFORMATION
  Report Type: Spontaneous
  Country: EC (occurrence: EC)
  Receive Date: 20251111
  Receipt Date: 20251111
  Transmission Date: 20260118
  Serious: Yes (Hospitalization, Other)
  Sender: GLAXOSMITHKLINE
  Company Number: EC-GSK-EC2025GSK143964

PATIENT
  Age: 27 Year
  Sex: Female

DRUGS (4)
  1. LAMOTRIGINE [Interacting]
     Active Substance: LAMOTRIGINE
     Indication: Migraine
     Dosage: 100 MG
  2. LAMOTRIGINE [Interacting]
     Active Substance: LAMOTRIGINE
     Indication: Major depression
  3. VALPROIC ACID [Interacting]
     Active Substance: VALPROIC ACID
     Indication: Migraine
     Dosage: 500 MG, 1D
  4. VALPROIC ACID [Interacting]
     Active Substance: VALPROIC ACID
     Indication: Major depression

REACTIONS (5)
  - Toxic epidermal necrolysis [Recovered/Resolved]
  - Haemorrhage [Recovered/Resolved]
  - Drug interaction [Recovered/Resolved]
  - Vaginal discharge [Recovered/Resolved]
  - Respiratory disorder [Recovered/Resolved]
